FAERS Safety Report 22089607 (Version 1)
Quarter: 2023Q1

REPORT INFORMATION
  Report Type: Spontaneous
  Country: US (occurrence: None)
  Receive Date: 20230311
  Receipt Date: 20230311
  Transmission Date: 20230418
  Serious: No
  Sender: FDA-Public Use
  Company Number: None

PATIENT
  Age: 53 Year
  Sex: Female
  Weight: 81 kg

DRUGS (11)
  1. SKYRIZI [Suspect]
     Active Substance: RISANKIZUMAB-RZAA
     Indication: Crohn^s disease
     Dates: start: 20230217
  2. OZEMPIC [Concomitant]
     Active Substance: SEMAGLUTIDE
  3. BUTRANS [Concomitant]
     Active Substance: BUPRENORPHINE
  4. Hormone patch [Concomitant]
  5. UNSPECIFIED INGREDIENT [Concomitant]
     Active Substance: UNSPECIFIED INGREDIENT
  6. DILAUDID [Concomitant]
     Active Substance: HYDROMORPHONE HYDROCHLORIDE
  7. VITAMINS [Concomitant]
     Active Substance: VITAMINS
  8. POTASSIUM [Concomitant]
     Active Substance: POTASSIUM
  9. MAGNESIUM [Concomitant]
     Active Substance: MAGNESIUM
  10. ZYRTEC [Concomitant]
     Active Substance: CETIRIZINE HYDROCHLORIDE
  11. MELATONIN [Concomitant]
     Active Substance: MELATONIN

REACTIONS (7)
  - Headache [None]
  - Pain [None]
  - Nausea [None]
  - Fatigue [None]
  - Arthralgia [None]
  - Back pain [None]
  - Infusion related reaction [None]

NARRATIVE: CASE EVENT DATE: 20230217
